FAERS Safety Report 23333431 (Version 2)
Quarter: 2024Q2

REPORT INFORMATION
  Report Type: Spontaneous
  Country: AT (occurrence: AT)
  Receive Date: 20231222
  Receipt Date: 20240419
  Transmission Date: 20240715
  Serious: Yes (Other)
  Sender: FDA-Public Use
  Company Number: DE-Korea IPSEN-2023-26594

PATIENT
  Age: 56 Year
  Sex: Male

DRUGS (8)
  1. AXITINIB [Suspect]
     Active Substance: AXITINIB
     Indication: Renal cell carcinoma
  2. AXITINIB [Suspect]
     Active Substance: AXITINIB
     Indication: Metastases to central nervous system
  3. NIVOLUMAB [Suspect]
     Active Substance: NIVOLUMAB
     Indication: Metastases to central nervous system
     Dosage: 240 MG
  4. NIVOLUMAB [Suspect]
     Active Substance: NIVOLUMAB
     Indication: Renal cell carcinoma
     Dosage: 240 MG
     Dates: start: 202106, end: 202203
  5. NIVOLUMAB [Suspect]
     Active Substance: NIVOLUMAB
     Dosage: 240 MG
  6. CABOMETYX [Suspect]
     Active Substance: CABOZANTINIB S-MALATE
     Indication: Renal cell carcinoma
     Dosage: 20 MG
     Dates: start: 202110, end: 202208
  7. CABOMETYX [Suspect]
     Active Substance: CABOZANTINIB S-MALATE
     Indication: Metastases to central nervous system
     Dosage: 40 MG
     Dates: start: 202106, end: 202108
  8. PEMBROLIZUMAB [Suspect]
     Active Substance: PEMBROLIZUMAB
     Indication: Renal cell carcinoma

REACTIONS (15)
  - Graves^ disease [Unknown]
  - Neoplasm progression [Unknown]
  - Cough [Unknown]
  - Aspartate aminotransferase increased [Unknown]
  - Eosinophilia [Unknown]
  - General physical health deterioration [Unknown]
  - Alanine aminotransferase increased [Unknown]
  - Rash [Unknown]
  - COVID-19 [Unknown]
  - Transaminases increased [Unknown]
  - Thyroid stimulating immunoglobulin increased [Unknown]
  - Anti-thyroid antibody increased [Unknown]
  - Off label use [Unknown]
  - Thyroid stimulating hormone deficiency [Unknown]
  - Anti-thyroid antibody increased [Unknown]

NARRATIVE: CASE EVENT DATE: 20210101
